FAERS Safety Report 21520050 (Version 4)
Quarter: 2022Q4

REPORT INFORMATION
  Report Type: Spontaneous
  Country: AR (occurrence: AR)
  Receive Date: 20221028
  Receipt Date: 20221205
  Transmission Date: 20230113
  Serious: No
  Sender: FDA-Public Use
  Company Number: AR-PFIZER INC-PV202200077017

PATIENT
  Age: 12 Year
  Sex: Male

DRUGS (1)
  1. GENOTROPIN [Suspect]
     Active Substance: SOMATROPIN
     Indication: Growth hormone deficiency
     Dosage: 0.6 TO 1 MG, 7 TIMES PER WEEK
     Dates: start: 20200724, end: 20221002

REACTIONS (3)
  - Drug dose omission by device [Not Recovered/Not Resolved]
  - Device malfunction [Not Recovered/Not Resolved]
  - Expired device used [Unknown]

NARRATIVE: CASE EVENT DATE: 20221002
